FAERS Safety Report 11717252 (Version 4)
Quarter: 2015Q4

REPORT INFORMATION
  Report Type: Report from Study
  Country: US (occurrence: US)
  Receive Date: 20151109
  Receipt Date: 20151229
  Transmission Date: 20160304
  Serious: No
  Sender: FDA-Public Use
  Company Number: US-AMGEN-USASL2015115509

PATIENT
  Age: 49 Year
  Sex: Female

DRUGS (4)
  1. ENBREL [Suspect]
     Active Substance: ETANERCEPT
     Dosage: UNK
     Route: 065
  2. VITAMIN D                          /00107901/ [Concomitant]
     Active Substance: ERGOCALCIFEROL
     Dosage: UNK
  3. ENBREL [Suspect]
     Active Substance: ETANERCEPT
     Indication: RHEUMATOID ARTHRITIS
     Dosage: 50 MG, 1X/ WEEK
     Route: 065
     Dates: start: 20150923
  4. VITAMIN E [Concomitant]
     Active Substance: .ALPHA.-TOCOPHEROL
     Dosage: UNK

REACTIONS (30)
  - Wrong technique in product usage process [Unknown]
  - Drug ineffective [Unknown]
  - Inflammation [Unknown]
  - Device difficult to use [Unknown]
  - Pain in extremity [Unknown]
  - Peripheral swelling [Unknown]
  - Injection site bruising [Unknown]
  - Nasopharyngitis [Unknown]
  - Injection site urticaria [Unknown]
  - Injection site discolouration [Unknown]
  - Injection site pruritus [Not Recovered/Not Resolved]
  - Asthenia [Unknown]
  - Injection site pain [Recovered/Resolved]
  - Muscle spasms [Unknown]
  - Pain [Unknown]
  - Decreased appetite [Unknown]
  - Injection site erythema [Recovered/Resolved]
  - Back pain [Unknown]
  - Joint swelling [Unknown]
  - Upper respiratory tract infection [Recovered/Resolved]
  - Injection site reaction [Unknown]
  - Cough [Unknown]
  - Pruritus [Unknown]
  - Contusion [Unknown]
  - Malaise [Unknown]
  - Oedema peripheral [Unknown]
  - Oropharyngeal pain [Unknown]
  - Arthralgia [Unknown]
  - Injection site irritation [Unknown]
  - Injection site haemorrhage [Unknown]

NARRATIVE: CASE EVENT DATE: 2015
